FAERS Safety Report 22073205 (Version 5)
Quarter: 2023Q2

REPORT INFORMATION
  Report Type: Spontaneous
  Country: CZ (occurrence: CZ)
  Receive Date: 20230308
  Receipt Date: 20230428
  Transmission Date: 20230722
  Serious: Yes (Hospitalization)
  Sender: FDA-Public Use
  Company Number: CZ-Accord-302936

PATIENT
  Age: 77 Year
  Sex: Male
  Weight: 80.00 kg

DRUGS (33)
  1. GEMCITABINE [Suspect]
     Active Substance: GEMCITABINE
     Indication: Diffuse large B-cell lymphoma stage II
     Dosage: 1Q2W
     Route: 042
     Dates: start: 20230110, end: 20230110
  2. OXALIPLATIN [Suspect]
     Active Substance: OXALIPLATIN
     Indication: Diffuse large B-cell lymphoma stage II
     Dosage: 1Q2W;
     Route: 042
     Dates: start: 20230110, end: 20230110
  3. EPCORITAMAB [Suspect]
     Active Substance: EPCORITAMAB
     Indication: Diffuse large B-cell lymphoma stage II
     Dosage: PRIMING DOSE: 0.16 MILLIGRAM, SINGLE;
     Route: 058
     Dates: start: 20230110, end: 20230110
  4. BISULEPIN [Concomitant]
     Active Substance: BISULEPIN
     Indication: Premedication
     Dosage: 1 MG
     Route: 042
     Dates: start: 20230110, end: 20230110
  5. ACETAMINOPHEN [Concomitant]
     Active Substance: ACETAMINOPHEN
     Indication: Premedication
     Route: 048
     Dates: start: 20230110, end: 20230110
  6. PARALEN [Concomitant]
     Indication: Premedication
     Dosage: 1000 MG
     Route: 048
     Dates: start: 20230131, end: 20230131
  7. PREDNISONE [Concomitant]
     Active Substance: PREDNISONE
     Indication: Prophylaxis
     Route: 048
     Dates: start: 20230110, end: 20230113
  8. ALLOPURINOL [Concomitant]
     Active Substance: ALLOPURINOL
     Dates: start: 20221107
  9. SULFAMETHOXAZOLE\TRIMETHOPRIM [Concomitant]
     Active Substance: SULFAMETHOXAZOLE\TRIMETHOPRIM
     Dates: start: 20180924
  10. GRANISETRON [Concomitant]
     Active Substance: GRANISETRON
     Dates: start: 20230110
  11. PANTOPRAZOLE [Concomitant]
     Active Substance: PANTOPRAZOLE
     Dates: start: 20221107
  12. ZOVIRAX [Concomitant]
     Active Substance: ACYCLOVIR
     Dates: start: 20180925
  13. ACYCLOVIR [Concomitant]
     Active Substance: ACYCLOVIR
     Dates: start: 20230109
  14. FILGRASTIM [Concomitant]
     Active Substance: FILGRASTIM
     Dates: start: 20230112, end: 20230128
  15. GEMCITABINE [Suspect]
     Active Substance: GEMCITABINE
     Indication: Diffuse large B-cell lymphoma stage II
     Dosage: 1Q2W; RPD1: 1000 MILLIGRAM/SQ. METER
     Route: 042
     Dates: start: 20230124, end: 20230124
  16. OXALIPLATIN [Suspect]
     Active Substance: OXALIPLATIN
     Indication: Diffuse large B-cell lymphoma stage II
     Dosage: 1Q2W;RPD1: 100 MILLIGRAM/SQ. METER
     Route: 042
     Dates: start: 20230124, end: 20230124
  17. EPCORITAMAB [Suspect]
     Active Substance: EPCORITAMAB
     Indication: Diffuse large B-cell lymphoma stage II
     Dosage: REPRIMING: PRIMING DOSE (RPD1): 0.16 MILLIGRAM, SINGLE;
     Route: 058
     Dates: start: 20230124, end: 20230124
  18. EPCORITAMAB [Suspect]
     Active Substance: EPCORITAMAB
     Indication: Diffuse large B-cell lymphoma stage II
     Dosage: REPRIMING: INTERMEDIATE DOSE (RPD8) 0.8 MILLIGRAM, SINGLE
     Route: 058
     Dates: start: 20230131, end: 20230131
  19. EPCORITAMAB [Suspect]
     Active Substance: EPCORITAMAB
     Indication: Diffuse large B-cell lymphoma stage II
     Dosage: REPRIMING: FULL DOSE(RPD15): 48 MILLIGRAM, WEEKLY
     Route: 058
     Dates: start: 20230207, end: 20230207
  20. BISULEPIN [Concomitant]
     Active Substance: BISULEPIN
     Indication: Premedication
     Dosage: 1 MG
     Route: 042
     Dates: start: 20230228, end: 20230228
  21. PARALEN [Concomitant]
     Indication: Premedication
     Dosage: 1000 MG
     Route: 048
     Dates: start: 20230228, end: 20230228
  22. EPCORITAMAB [Suspect]
     Active Substance: EPCORITAMAB
     Indication: Diffuse large B-cell lymphoma stage II
     Dosage: REPRIMING FULL DOSE (RPD22) 48 MILLIGRAM, WEEKLY;
     Route: 058
     Dates: start: 20230228
  23. GEMCITABINE [Suspect]
     Active Substance: GEMCITABINE
     Indication: Diffuse large B-cell lymphoma stage II
     Dosage: RPD15: 1000 MILLIGRAM/SQ.METER, 1Q2W;
     Route: 042
     Dates: start: 20230207
  24. OXALIPLATIN [Suspect]
     Active Substance: OXALIPLATIN
     Indication: Diffuse large B-cell lymphoma stage II
     Dosage: 1Q2W; RPD15:100 MILLIGRAM/SQ.METER
     Route: 042
     Dates: start: 20230207
  25. BISULEPIN [Concomitant]
     Active Substance: BISULEPIN
     Indication: Premedication
     Dosage: 1 MG
     Route: 042
     Dates: start: 20230124, end: 20230124
  26. BISULEPIN [Concomitant]
     Active Substance: BISULEPIN
     Indication: Premedication
     Dosage: 1 MG
     Route: 042
     Dates: start: 20230131, end: 20230131
  27. BISULEPIN [Concomitant]
     Active Substance: BISULEPIN
     Indication: Premedication
     Dosage: 1 MG
     Route: 042
     Dates: start: 20230207, end: 20230207
  28. PARALEN [Concomitant]
     Indication: Premedication
     Dosage: 1000 MG
     Route: 048
     Dates: start: 20230207, end: 20230207
  29. ACETAMINOPHEN [Concomitant]
     Active Substance: ACETAMINOPHEN
     Indication: Premedication
     Route: 048
     Dates: start: 20230124, end: 20230124
  30. PREDNISONE [Concomitant]
     Active Substance: PREDNISONE
     Indication: Prophylaxis
     Route: 048
     Dates: start: 20230124, end: 20230127
  31. PREDNISONE [Concomitant]
     Active Substance: PREDNISONE
     Indication: Prophylaxis
     Route: 048
     Dates: start: 20230131, end: 20230203
  32. PREDNISONE [Concomitant]
     Active Substance: PREDNISONE
     Indication: Prophylaxis
     Route: 048
     Dates: start: 20230207, end: 20230210
  33. PREDNISONE [Concomitant]
     Active Substance: PREDNISONE
     Indication: Prophylaxis
     Route: 048
     Dates: start: 20230228, end: 20230303

REACTIONS (1)
  - Vertigo [Recovered/Resolved]

NARRATIVE: CASE EVENT DATE: 20230211
